FAERS Safety Report 8825189 (Version 1)
Quarter: 2012Q4

REPORT INFORMATION
  Report Type: 
  Country: CH (occurrence: CH)
  Receive Date: 20121004
  Receipt Date: 20121004
  Transmission Date: 20130627
  Serious: Yes (Other)
  Sender: FDA-Public Use
  Company Number: CH-GLAXOSMITHKLINE-B0835108A

PATIENT
  Age: 52 Year
  Sex: Female

DRUGS (6)
  1. IMIGRAN [Suspect]
     Indication: PRODUCT USED FOR UNKNOWN INDICATION
     Route: 058
     Dates: start: 201209
  2. TOPIRAMATE [Suspect]
     Indication: PRODUCT USED FOR UNKNOWN INDICATION
     Dosage: 25MG Per day
     Route: 048
     Dates: start: 20120911, end: 20120912
  3. XYREM [Suspect]
     Indication: PRODUCT USED FOR UNKNOWN INDICATION
     Dosage: 9G Per day
     Route: 048
     Dates: start: 2007
  4. SAROTEN [Suspect]
     Indication: PRODUCT USED FOR UNKNOWN INDICATION
     Route: 048
     Dates: start: 20120910
  5. VERAPAMIL [Suspect]
     Indication: PRODUCT USED FOR UNKNOWN INDICATION
     Dosage: 400MG Per day
     Route: 048
     Dates: start: 201209
  6. REMERON [Suspect]
     Indication: PRODUCT USED FOR UNKNOWN INDICATION
     Dosage: 45MG Per day
     Route: 048
     Dates: start: 2007

REACTIONS (2)
  - Depressed level of consciousness [Recovering/Resolving]
  - Eye movement disorder [Recovering/Resolving]
